FAERS Safety Report 5643666-0 (Version None)
Quarter: 2008Q1

REPORT INFORMATION
  Report Type: 
  Country: None (occurrence: None)
  Receive Date: 20080228
  Receipt Date: 20080222
  Transmission Date: 20080703
  Serious: Yes (Hospitalization)
  Sender: FDA-Public Use
  Company Number: US-GILEAD-2008-0015366

PATIENT
  Sex: Male

DRUGS (1)
  1. LETAIRIS [Suspect]

REACTIONS (1)
  - PULMONARY OEDEMA [None]
